FAERS Safety Report 8250416-0 (Version None)
Quarter: 2012Q1

REPORT INFORMATION
  Report Type: 
  Country: None (occurrence: None)
  Receive Date: 20120328
  Receipt Date: 20120316
  Transmission Date: 20120608
  Serious: Yes (Other)
  Sender: FDA-Public Use
  Company Number: 2012MA003822

PATIENT
  Sex: Female

DRUGS (2)
  1. IBUPROFEN [Suspect]
     Indication: HEADACHE
     Dosage: 400 MG; PO
     Route: 048
     Dates: start: 20120221
  2. ACETAMINOPHEN AND CODEINE PHOSPHATE [Concomitant]

REACTIONS (4)
  - OROPHARYNGEAL PAIN [None]
  - FOREIGN BODY [None]
  - EATING DISORDER [None]
  - PRODUCT SIZE ISSUE [None]
